FAERS Safety Report 7305252-6 (Version None)
Quarter: 2011Q1

REPORT INFORMATION
  Report Type: 
  Country: None (occurrence: None)
  Receive Date: 20110222
  Receipt Date: 20110215
  Transmission Date: 20110831
  Serious: Yes (Other)
  Sender: FDA-Public Use
  Company Number: US-PFIZER INC-2010126204

PATIENT
  Sex: Male

DRUGS (3)
  1. ONDANSETRON [Concomitant]
     Indication: NAUSEA
     Dosage: 8 MG, UNK
     Dates: start: 20101006, end: 20101011
  2. LOMOTIL [Concomitant]
     Indication: DIARRHOEA
     Dosage: 1 TAB
     Dates: start: 20101006, end: 20101011
  3. SUTENT [Suspect]
     Indication: METASTATIC RENAL CELL CARCINOMA
     Dosage: 50 MG, 1X/DAY, FOR 14 DAYS EVERY 21 DAYS
     Route: 048
     Dates: start: 20100519, end: 20101105

REACTIONS (13)
  - CANDIDIASIS [None]
  - HYPERTENSION [None]
  - BONE PAIN [None]
  - ARRHYTHMIA [None]
  - DYSPNOEA [None]
  - VOMITING [None]
  - DIARRHOEA [None]
  - TREMOR [None]
  - NAUSEA [None]
  - PAIN [None]
  - DEHYDRATION [None]
  - THROMBOSIS [None]
  - FATIGUE [None]
